FAERS Safety Report 7432427-8 (Version None)
Quarter: 2011Q2

REPORT INFORMATION
  Report Type: 
  Country: None (occurrence: None)
  Receive Date: 20110422
  Receipt Date: 20110330
  Transmission Date: 20111010
  Serious: Yes (Other)
  Sender: FDA-Public Use
  Company Number: PHHY2011ZA27539

PATIENT
  Age: 71 Year

DRUGS (1)
  1. GLEEVEC [Suspect]
     Dosage: UNK
     Route: 048
     Dates: start: 20091101

REACTIONS (1)
  - BONE LESION [None]
